FAERS Safety Report 9134279 (Version 2)
Quarter: 2013Q1

REPORT INFORMATION
  Report Type: Spontaneous
  Country: SA (occurrence: SA)
  Receive Date: 20130304
  Receipt Date: 20130318
  Transmission Date: 20140127
  Serious: Yes (Death)
  Sender: FDA-Public Use
  Company Number: SA-JNJFOC-20130213558

PATIENT
  Sex: Male
  Weight: 64 kg

DRUGS (2)
  1. ZYTIGA [Suspect]
     Indication: PROSTATE CANCER METASTATIC
     Dosage: 250 MG * 4 TABLETS
     Route: 048
     Dates: start: 201206, end: 201208
  2. PREDNISONE [Suspect]
     Indication: PROSTATE CANCER METASTATIC
     Dosage: 2 X 5 MG
     Route: 048
     Dates: start: 201206, end: 201208

REACTIONS (3)
  - Metastases to central nervous system [Fatal]
  - Metastases to meninges [Fatal]
  - Fatigue [Fatal]
